FAERS Safety Report 8055672-X (Version None)
Quarter: 2012Q1

REPORT INFORMATION
  Report Type: 
  Country: None (occurrence: None)
  Receive Date: 20120119
  Receipt Date: 20120107
  Transmission Date: 20120608
  Serious: Yes (Hospitalization, Other)
  Sender: FDA-Public Use
  Company Number: JP-ELI_LILLY_AND_COMPANY-JP201110004755

PATIENT
  Sex: Female

DRUGS (1)
  1. FORTEO [Suspect]
     Route: 058

REACTIONS (4)
  - CARDIAC OPERATION [None]
  - CATARACT OPERATION [None]
  - POSTOPERATIVE FEVER [None]
  - MYOCARDIAL INFARCTION [None]
